FAERS Safety Report 9893286 (Version 2)
Quarter: 2014Q3

REPORT INFORMATION
  Report Type: Spontaneous
  Country: US (occurrence: US)
  Receive Date: 20140213
  Receipt Date: 20140819
  Transmission Date: 20150326
  Serious: Yes (Hospitalization, Other)
  Sender: FDA-Public Use
  Company Number: US-009507513-1402USA005069

PATIENT
  Sex: Female

DRUGS (1)
  1. NUVARING [Suspect]
     Active Substance: ETHINYL ESTRADIOL\ETONOGESTREL
     Indication: PRODUCT USED FOR UNKNOWN INDICATION
     Route: 067

REACTIONS (9)
  - Pancreatectomy [Unknown]
  - Pulmonary embolism [Recovered/Resolved]
  - Biliary tract disorder [Unknown]
  - Pancreatic disorder [Unknown]
  - Deep vein thrombosis [Unknown]
  - Nephrolithiasis [Unknown]
  - Pancreatic neuroendocrine tumour [Unknown]
  - Small intestinal obstruction [Unknown]
  - Intestinal ischaemia [Unknown]

NARRATIVE: CASE EVENT DATE: 2009
